FAERS Safety Report 10688464 (Version 2)
Quarter: 2015Q1

REPORT INFORMATION
  Report Type: Not Available
  Country: SE (occurrence: SE)
  Receive Date: 20150102
  Receipt Date: 20150206
  Transmission Date: 20150720
  Serious: Yes (Hospitalization)
  Sender: FDA-Public Use
  Company Number: SE-MUNDIPHARMA DS AND PHARMACOVIGILANCE-GBR-2014-0024734

PATIENT
  Age: 30 Year
  Sex: Female

DRUGS (12)
  1. PRIMPERAN COMPLEX                  /00727201/ [Concomitant]
     Dosage: 10 MG, UNK
  2. KALCIPOS-D [Concomitant]
     Active Substance: CALCIUM CARBONATE\CHOLECALCIFEROL
     Dosage: 500MG/400IE
  3. SYMBICORT [Concomitant]
     Active Substance: BUDESONIDE\FORMOTEROL FUMARATE DIHYDRATE
     Dosage: 160MCG/4.5MCG
     Route: 055
  4. PAPAVERIN RECIP [Concomitant]
     Active Substance: PAPAVERINE
     Dosage: 40 MG, UNK
  5. SUCRALFATE. [Concomitant]
     Active Substance: SUCRALFATE
     Dosage: 200 MG/ML, UNK
  6. CREON [Concomitant]
     Active Substance: PANCRELIPASE AMYLASE\PANCRELIPASE LIPASE\PANCRELIPASE PROTEASE
  7. SOBRIL [Concomitant]
     Active Substance: OXAZEPAM
     Dosage: 5 MG, UNK
  8. BRICANYL LP [Concomitant]
     Dosage: 0.25 MG, UNK
  9. CIPROXIN                           /00697201/ [Concomitant]
     Dosage: 100 MG/ML, UNK
  10. ATARAX [Concomitant]
     Active Substance: HYDROXYZINE\HYDROXYZINE HYDROCHLORIDE
     Dosage: 25 MG, UNK
  11. OXYNORM 5 MG KAPSEL, HARD [Suspect]
     Active Substance: OXYCODONE HYDROCHLORIDE
     Indication: PRODUCT USED FOR UNKNOWN INDICATION
     Dosage: MAX 20 TABLETTER
     Route: 065
     Dates: start: 20140217, end: 20140217
  12. SPASMOFEN [Concomitant]
     Active Substance: CODEINE HYDROCHLORIDE\METHSCOPOLAMINE NITRATE\MORPHINE HYDROCHLORIDE\ NOSCAPINE HYDROCHLORIDE\PAPAVERINE HYDROCHLORIDE

REACTIONS (3)
  - Toxicity to various agents [Recovered/Resolved]
  - Suicide attempt [Recovered/Resolved]
  - Respiratory depression [Recovered/Resolved]

NARRATIVE: CASE EVENT DATE: 20140217
